FAERS Safety Report 7457199-2 (Version None)
Quarter: 2011Q2

REPORT INFORMATION
  Report Type: 
  Country: None (occurrence: None)
  Receive Date: 20110504
  Receipt Date: 20110428
  Transmission Date: 20111010
  Serious: Yes (Other)
  Sender: FDA-Public Use
  Company Number: US-PFIZER INC-2011092122

PATIENT
  Sex: Female
  Weight: 74.8 kg

DRUGS (2)
  1. PREMPRO [Suspect]
     Indication: MENOPAUSE
     Dosage: 5 MG, DAILY
     Route: 048
  2. NAPROXEN [Concomitant]
     Indication: PAIN
     Dosage: UNK

REACTIONS (3)
  - HYPERTENSION [None]
  - ALOPECIA [None]
  - PRURITUS [None]
